FAERS Safety Report 17042382 (Version 1)
Quarter: 2019Q4

REPORT INFORMATION
  Report Type: Spontaneous
  Country: CN (occurrence: CN)
  Receive Date: 20191118
  Receipt Date: 20191118
  Transmission Date: 20200122
  Serious: Yes (Other)
  Sender: FDA-Public Use
  Company Number: CN-PBT-000047

PATIENT
  Age: 35 Year

DRUGS (3)
  1. PREDNISONE. [Suspect]
     Active Substance: PREDNISONE
     Indication: IMMUNE-MEDIATED MYOSITIS
     Dosage: 5 MG/ TABLET EVERY MONTH
     Route: 048
  2. PREDNISONE. [Suspect]
     Active Substance: PREDNISONE
     Indication: IMMUNE-MEDIATED MYOSITIS
     Dosage: PER DAY
     Route: 048
  3. TACROLIMUS. [Suspect]
     Active Substance: TACROLIMUS
     Indication: IMMUNE-MEDIATED MYOSITIS
     Dosage: PER DAY
     Route: 065

REACTIONS (3)
  - Product use in unapproved indication [Unknown]
  - Immune-mediated myositis [Recovering/Resolving]
  - Condition aggravated [Recovering/Resolving]
